FAERS Safety Report 11060431 (Version 1)
Quarter: 2015Q2

REPORT INFORMATION
  Report Type: Spontaneous
  Country: US (occurrence: US)
  Receive Date: 20150423
  Receipt Date: 20150423
  Transmission Date: 20150821
  Serious: No
  Sender: FDA-Public Use
  Company Number: US-TARO-2014TAR00135

PATIENT
  Age: 53 Year
  Sex: Female
  Weight: 58.96 kg

DRUGS (1)
  1. HYDROCORTISONE 1% W/ACETIC ACID 2% OTIC SOLUTION USP [Suspect]
     Active Substance: HYDROCORTISONE
     Indication: EAR DISORDER
     Dosage: UNK, 3X/DAY
     Route: 001
     Dates: start: 20140703, end: 20140707

REACTIONS (3)
  - Drug dose omission [Recovered/Resolved]
  - Application site pain [Recovered/Resolved]
  - Application site irritation [Not Recovered/Not Resolved]

NARRATIVE: CASE EVENT DATE: 20140703
